FAERS Safety Report 6473127-0 (Version None)
Quarter: 2009Q4

REPORT INFORMATION
  Report Type: 
  Country: None (occurrence: None)
  Receive Date: 20091204
  Receipt Date: 20081222
  Transmission Date: 20100525
  Serious: Yes (Life-Threatening, Hospitalization, Other)
  Sender: FDA-Public Use
  Company Number: US-ELI_LILLY_AND_COMPANY-US200806004436

PATIENT
  Sex: Male

DRUGS (14)
  1. CYMBALTA [Suspect]
     Indication: DEPRESSION
     Dosage: 1 D/F, UNK
     Dates: start: 20031001, end: 20070501
  2. CYMBALTA [Suspect]
     Dosage: 30 MG, 3/D
     Dates: start: 20061007
  3. SEROQUEL [Concomitant]
     Indication: DEPRESSION
     Dosage: 25 MG, EACH EVENING
     Dates: start: 20031001, end: 20070501
  4. WELLBUTRIN [Concomitant]
     Indication: DEPRESSION
     Dosage: UNK, UNK
     Dates: start: 20031001, end: 20040113
  5. WELLBUTRIN [Concomitant]
     Dosage: 300 MG, UNK
     Dates: start: 20040317, end: 20070501
  6. LEXAPRO [Concomitant]
     Indication: DEPRESSION
     Dosage: 10 MG, UNK
     Dates: start: 20031001, end: 20041214
  7. LEXAPRO [Concomitant]
     Dosage: 15 MG, EACH MORNING
     Dates: start: 20041215, end: 20060101
  8. RESTORIL [Concomitant]
     Indication: DEPRESSION
     Dosage: UNK, UNK
     Dates: start: 20031001, end: 20070501
  9. TRAZODONE HCL [Concomitant]
     Dosage: UNK, UNK
     Dates: start: 20031001, end: 20040113
  10. NEURONTIN [Concomitant]
     Indication: RESTLESS LEGS SYNDROME
     Dosage: UNK, UNK
     Dates: start: 20031001
  11. ZOLOFT [Concomitant]
     Dosage: UNK, UNK
     Dates: start: 20031001, end: 20040113
  12. HYDROCHLOROTHIAZIDE [Concomitant]
     Indication: DEHYDRATION
  13. ACETAMINOPHEN AND HYDROCODONE BITARTRATE [Concomitant]
     Indication: BACK PAIN
  14. CARISOPRODOL [Concomitant]
     Indication: BACK PAIN

REACTIONS (50)
  - ABNORMAL BEHAVIOUR [None]
  - ACTIVITIES OF DAILY LIVING IMPAIRED [None]
  - ANGER [None]
  - ANXIETY [None]
  - APHASIA [None]
  - ASBESTOSIS [None]
  - ATTENTION DEFICIT/HYPERACTIVITY DISORDER [None]
  - BLADDER DISORDER [None]
  - BLOOD CHOLESTEROL ABNORMAL [None]
  - BLOOD PRESSURE INCREASED [None]
  - BLOOD TRIGLYCERIDES ABNORMAL [None]
  - BRUXISM [None]
  - CONSTIPATION [None]
  - CONVULSION [None]
  - DEPRESSION [None]
  - DRUG WITHDRAWAL SYNDROME [None]
  - DYSKINESIA [None]
  - EMOTIONAL DISTRESS [None]
  - FEELING ABNORMAL [None]
  - GAIT DISTURBANCE [None]
  - HALLUCINATION [None]
  - HEADACHE [None]
  - HOSTILITY [None]
  - HYPERHIDROSIS [None]
  - HYPOTHYROIDISM [None]
  - INSOMNIA [None]
  - LETHARGY [None]
  - MEMORY IMPAIRMENT [None]
  - MUSCLE SPASMS [None]
  - MUSCLE TWITCHING [None]
  - NIGHTMARE [None]
  - PAIN [None]
  - PALLOR [None]
  - PANCREATITIS [None]
  - PANIC ATTACK [None]
  - PROSTATIC DISORDER [None]
  - PYREXIA [None]
  - RENAL FAILURE [None]
  - RESTLESS LEGS SYNDROME [None]
  - ROAD TRAFFIC ACCIDENT [None]
  - SLEEP APNOEA SYNDROME [None]
  - SUICIDAL IDEATION [None]
  - SUICIDE ATTEMPT [None]
  - TACHYCARDIA [None]
  - TARDIVE DYSKINESIA [None]
  - TERMINAL INSOMNIA [None]
  - THYROID DISORDER [None]
  - URINARY INCONTINENCE [None]
  - VOMITING [None]
  - WEIGHT DECREASED [None]
